FAERS Safety Report 7178322-3 (Version None)
Quarter: 2010Q4

REPORT INFORMATION
  Report Type: 
  Country: None (occurrence: None)
  Receive Date: 20101220
  Receipt Date: 20101207
  Transmission Date: 20110411
  Serious: Yes (Hospitalization)
  Sender: FDA-Public Use
  Company Number: FR-ELI_LILLY_AND_COMPANY-FR201012001698

PATIENT
  Sex: Female

DRUGS (6)
  1. ZYPREXA [Suspect]
     Indication: BIPOLAR DISORDER
     Dosage: 5 MG, DAILY (1/D)
     Route: 048
     Dates: start: 20100701, end: 20101012
  2. DEPAKOTE [Concomitant]
     Dosage: 3 D/F, DAILY (1/D)
     Route: 048
     Dates: start: 20100701, end: 20101012
  3. FLECAINIDE ACETATE [Concomitant]
     Dosage: 100 MG, DAILY (1/D)
     Route: 048
     Dates: start: 20090101, end: 20101012
  4. BIPRETERAX [Concomitant]
     Dosage: 0.5 D/F, DAILY (1/D)
     Route: 048
     Dates: start: 20090101, end: 20101012
  5. KARDEGIC [Concomitant]
     Dosage: 160 MG, DAILY (1/D)
     Route: 048
     Dates: start: 20090101
  6. DAFALGAN [Concomitant]
     Dosage: 500 MG, EVERY 4 HRS
     Route: 048
     Dates: start: 20090101

REACTIONS (2)
  - AGRANULOCYTOSIS [None]
  - HAEMOGLOBIN DECREASED [None]
